FAERS Safety Report 5830354-0 (Version None)
Quarter: 2008Q3

REPORT INFORMATION
  Report Type: 
  Country: None (occurrence: None)
  Receive Date: 20080801
  Receipt Date: 20080723
  Transmission Date: 20090109
  Serious: Yes (Other)
  Sender: FDA-Public Use
  Company Number: NO-WYE-H05172008

PATIENT
  Sex: Male

DRUGS (5)
  1. CORDARONE [Suspect]
     Indication: ARRHYTHMIA
     Dates: start: 20080308, end: 20080515
  2. CORDARONE [Suspect]
     Dates: start: 20080516, end: 20080523
  3. CORDARONE [Suspect]
     Dates: start: 20080523, end: 20080101
  4. CORDARONE [Suspect]
     Dates: start: 20080101
  5. MAREVAN [Concomitant]

REACTIONS (3)
  - ALOPECIA [None]
  - HYPERTHYROIDISM [None]
  - NIGHTMARE [None]
